FAERS Safety Report 7495388-1 (Version None)
Quarter: 2011Q2

REPORT INFORMATION
  Report Type: 
  Country: None (occurrence: None)
  Receive Date: 20110523
  Receipt Date: 20110510
  Transmission Date: 20111010
  Serious: Yes (Hospitalization, Other)
  Sender: FDA-Public Use
  Company Number: US-EISAI INC-E3810-04595-SOL-US

PATIENT
  Sex: Female

DRUGS (7)
  1. BENADRYL [Suspect]
     Dosage: UNKNOWN
  2. SYNTHROID [Concomitant]
     Indication: HYPOTHYROIDISM
     Route: 048
  3. ACIPHEX [Suspect]
     Indication: GASTROOESOPHAGEAL REFLUX DISEASE
     Route: 048
     Dates: end: 20110101
  4. HYDROCHLOROTHIAZIDE [Concomitant]
     Indication: BLOOD PRESSURE ABNORMAL
     Route: 048
  5. FLEXERIL [Suspect]
     Dosage: UNKNOWN
  6. TOPAMAX [Suspect]
     Indication: RESTLESS LEGS SYNDROME
     Dosage: UNKNOWN
     Route: 048
  7. ULTRAM [Suspect]
     Dosage: UNKNOWN

REACTIONS (17)
  - DRY EYE [None]
  - MULTIPLE ALLERGIES [None]
  - HYPOTONIA [None]
  - WOUND [None]
  - SPINAL COLUMN STENOSIS [None]
  - INTERVERTEBRAL DISC PROTRUSION [None]
  - MENTAL DISORDER [None]
  - IMPAIRED HEALING [None]
  - RESPIRATORY DISORDER [None]
  - RESTLESS LEGS SYNDROME [None]
  - OESOPHAGEAL RUPTURE [None]
  - BRONCHITIS [None]
  - STRESS [None]
  - URINARY INCONTINENCE [None]
  - SINUS DISORDER [None]
  - OESOPHAGITIS [None]
  - BODY HEIGHT DECREASED [None]
